FAERS Safety Report 6638634-6 (Version None)
Quarter: 2010Q1

REPORT INFORMATION
  Report Type: 
  Country: None (occurrence: None)
  Receive Date: 20100317
  Receipt Date: 20100311
  Transmission Date: 20100710
  Serious: Yes (Death)
  Sender: FDA-Public Use
  Company Number: GB-CEPHALON-2010001541

PATIENT
  Sex: Male

DRUGS (4)
  1. TREANDA [Suspect]
     Indication: AMYLOIDOSIS
     Dates: start: 20100301
  2. TREANDA [Suspect]
     Indication: NON-HODGKIN'S LYMPHOMA
  3. ALLOPURINOL [Suspect]
  4. FLUDROCORTISONE [Suspect]

REACTIONS (1)
  - MYOCARDIAL INFARCTION [None]
